FAERS Safety Report 12527400 (Version 2)
Quarter: 2016Q3

REPORT INFORMATION
  Report Type: Spontaneous
  Country: AR (occurrence: AR)
  Receive Date: 20160705
  Receipt Date: 20160727
  Transmission Date: 20161109
  Serious: Yes (Other)
  Sender: FDA-Public Use
  Company Number: AR-PFIZER INC-2016315268

PATIENT
  Age: 78 Year
  Sex: Female

DRUGS (1)
  1. SUTENT [Suspect]
     Active Substance: SUNITINIB MALATE
     Indication: METASTATIC RENAL CELL CARCINOMA
     Dosage: UNK, CYCLIC (2 WEEKS ON, 1 WEEK OFF, 2 CAPSULES ON MONDAY AND FRIDAY AND 3 CAPSULES EVERY OTHER DAY)
     Dates: start: 20151027

REACTIONS (3)
  - Second primary malignancy [Unknown]
  - Bone decalcification [Not Recovered/Not Resolved]
  - Neoplasm [Unknown]

NARRATIVE: CASE EVENT DATE: 201605
